FAERS Safety Report 9284869 (Version 2)
Quarter: 2013Q4

REPORT INFORMATION
  Report Type: Spontaneous
  Country: FR (occurrence: FR)
  Receive Date: 20130513
  Receipt Date: 20131205
  Transmission Date: 20140711
  Serious: Yes (Hospitalization)
  Sender: FDA-Public Use
  Company Number: FR-ROCHE-1221114

PATIENT
  Age: 64 Year
  Sex: Female

DRUGS (14)
  1. ROACTEMRA [Suspect]
     Indication: TEMPORAL ARTERITIS
     Route: 041
     Dates: start: 20120816, end: 20121116
  2. ROACTEMRA [Suspect]
     Route: 065
     Dates: start: 20120816
  3. ROACTEMRA [Suspect]
     Route: 065
     Dates: start: 20120919
  4. ROACTEMRA [Suspect]
     Route: 065
     Dates: start: 20121015
  5. ROACTEMRA [Suspect]
     Route: 065
     Dates: start: 20121116
  6. MABTHERA [Suspect]
     Indication: TEMPORAL ARTERITIS
     Route: 041
     Dates: start: 201204, end: 201208
  7. BACTRIM FORTE [Suspect]
     Indication: OPPORTUNISTIC INFECTION PROPHYLAXIS
     Route: 048
     Dates: start: 201208, end: 20130111
  8. PARIET [Concomitant]
     Route: 065
  9. LEDERFOLINE [Concomitant]
     Route: 065
  10. TAHOR [Concomitant]
     Route: 065
  11. AMOXICILLINE [Concomitant]
     Route: 065
  12. ENDOXAN [Concomitant]
  13. IMUREL [Concomitant]
  14. METHOTREXATE [Concomitant]
     Route: 065
     Dates: start: 20120420

REACTIONS (1)
  - Agranulocytosis [Recovered/Resolved]
